FAERS Safety Report 25813818 (Version 1)
Quarter: 2025Q3

REPORT INFORMATION
  Report Type: Spontaneous
  Country: CA (occurrence: CA)
  Receive Date: 20250917
  Receipt Date: 20250917
  Transmission Date: 20251021
  Serious: Yes (Other)
  Sender: ASTELLAS
  Company Number: CA-ASTELLAS-2025-AER-051190

PATIENT
  Sex: Male

DRUGS (2)
  1. TACROLIMUS [Suspect]
     Active Substance: TACROLIMUS
     Indication: Renal transplant
     Route: 065
  2. RITUXIMAB [Suspect]
     Active Substance: RITUXIMAB
     Indication: Post transplant lymphoproliferative disorder
     Dosage: FOR 4 WEEKS
     Route: 065

REACTIONS (4)
  - Post transplant lymphoproliferative disorder [Recovered/Resolved]
  - Ocular lymphoma [Recovered/Resolved]
  - Disease recurrence [Recovered/Resolved]
  - Otitis media [Recovered/Resolved]
